FAERS Safety Report 11457399 (Version 1)
Quarter: 2015Q3

REPORT INFORMATION
  Report Type: Spontaneous
  Country: US (occurrence: US)
  Receive Date: 20150904
  Receipt Date: 20150904
  Transmission Date: 20151125
  Serious: Yes (Other)
  Sender: FDA-Public Use
  Company Number: US-JNJFOC-20150821349

PATIENT
  Age: 33 Year
  Sex: Female
  Weight: 56.7 kg

DRUGS (2)
  1. IMODIUM MULTI-SYMPTOM RELIEF [Suspect]
     Active Substance: DIMETHICONE\LOPERAMIDE HYDROCHLORIDE
     Indication: DIARRHOEA
     Route: 048
     Dates: start: 20150825, end: 20150825
  2. IMODIUM MULTI-SYMPTOM RELIEF [Suspect]
     Active Substance: DIMETHICONE\LOPERAMIDE HYDROCHLORIDE
     Indication: DIARRHOEA
     Dosage: 1-2 CAPLETS ONCE A DAY OR AS NEEDED
     Route: 048

REACTIONS (10)
  - Product difficult to swallow [Unknown]
  - Product coating issue [None]
  - Maternal exposure during pregnancy [None]
  - Product quality issue [Unknown]
  - Exposure during pregnancy [Recovered/Resolved]
  - Product packaging issue [Unknown]
  - Premature labour [Not Recovered/Not Resolved]
  - Wrong technique in product usage process [Unknown]
  - Product lot number issue [None]
  - Pregnancy [None]

NARRATIVE: CASE EVENT DATE: 20150604
